FAERS Safety Report 17006215 (Version 1)
Quarter: 2019Q4

REPORT INFORMATION
  Report Type: Spontaneous
  Country: US (occurrence: US)
  Receive Date: 20190926
  Receipt Date: 20190926
  Transmission Date: 20200122
  Serious: No
  Sender: FDA-Public Use
  Company Number: None

PATIENT
  Age: 37 Year
  Sex: Female
  Weight: 102.06 kg

DRUGS (2)
  1. METHYLPHENIDATE 36MG [Suspect]
     Active Substance: METHYLPHENIDATE
     Indication: PRODUCT USED FOR UNKNOWN INDICATION
     Route: 048
  2. METHYLPHENIDATE 36MG [Suspect]
     Active Substance: METHYLPHENIDATE
     Route: 048

REACTIONS (3)
  - Product substitution issue [None]
  - Therapeutic response shortened [None]
  - Unevaluable event [None]

NARRATIVE: CASE EVENT DATE: 20190801
